FAERS Safety Report 17448666 (Version 2)
Quarter: 2020Q1

REPORT INFORMATION
  Report Type: Report from Study
  Country: US (occurrence: US)
  Receive Date: 20200224
  Receipt Date: 20200306
  Transmission Date: 20200409
  Serious: Yes (Hospitalization)
  Sender: FDA-Public Use
  Company Number: US-ROCHE-2548062

PATIENT
  Age: 77 Year
  Sex: Female
  Weight: 56.3 kg

DRUGS (2)
  1. ACTEMRA [Suspect]
     Active Substance: TOCILIZUMAB
     Indication: TEMPORAL ARTERITIS
     Route: 058
     Dates: start: 201902
  2. ASPIRIN [ACETYLSALICYLIC ACID] [Concomitant]
     Active Substance: ASPIRIN
     Indication: THROMBOSIS
     Route: 048

REACTIONS (3)
  - Ankle fracture [Recovered/Resolved]
  - Treatment noncompliance [Unknown]
  - Fall [Unknown]

NARRATIVE: CASE EVENT DATE: 201912
